FAERS Safety Report 7292580-6 (Version None)
Quarter: 2011Q1

REPORT INFORMATION
  Report Type: 
  Country: None (occurrence: None)
  Receive Date: 20110203
  Receipt Date: 20110117
  Transmission Date: 20110831
  Serious: Yes (Other)
  Sender: FDA-Public Use
  Company Number: 025681

PATIENT
  Sex: Female
  Weight: 68.0396 kg

DRUGS (6)
  1. CALCIUM [Concomitant]
  2. CIMZIA [Suspect]
     Indication: RHEUMATOID ARTHRITIS
     Dosage: (200 MG 1X/2 WEEKS, FIRST MAINTENANCE DOSE SUBCUTANEOUS)
     Route: 058
     Dates: start: 20110110
  3. VICODIN [Concomitant]
  4. AVALIDE [Concomitant]
  5. FOLIC ACID [Concomitant]
  6. PREDNISONE [Concomitant]

REACTIONS (8)
  - COUGH [None]
  - RASH MACULAR [None]
  - DYSPHONIA [None]
  - HOT FLUSH [None]
  - RASH MORBILLIFORM [None]
  - RASH PRURITIC [None]
  - CHEST DISCOMFORT [None]
  - DYSPNOEA [None]
